FAERS Safety Report 9357970 (Version 1)
Quarter: 2013Q2

REPORT INFORMATION
  Report Type: Spontaneous
  Country: US (occurrence: None)
  Receive Date: 20130619
  Receipt Date: 20130619
  Transmission Date: 20140414
  Serious: No
  Sender: FDA-Public Use
  Company Number: None

PATIENT
  Age: 56 Year
  Sex: Female
  Weight: 70.76 kg

DRUGS (2)
  1. SMZ/TMP DS [Suspect]
     Indication: URINARY TRACT INFECTION
     Dates: start: 20130511, end: 20130512
  2. SMZ/TMP DS [Suspect]
     Indication: PYREXIA
     Dates: start: 20130511, end: 20130512

REACTIONS (5)
  - Musculoskeletal stiffness [None]
  - Asthenia [None]
  - Headache [None]
  - Neck pain [None]
  - Muscular weakness [None]
